FAERS Safety Report 23802844 (Version 1)
Quarter: 2024Q2

REPORT INFORMATION
  Report Type: Spontaneous
  Country: SE (occurrence: SE)
  Receive Date: 20240501
  Receipt Date: 20240501
  Transmission Date: 20240716
  Serious: Yes (Other)
  Sender: FDA-Public Use
  Company Number: None

PATIENT
  Age: 76 Year
  Sex: Female

DRUGS (1)
  1. AMLODIPINE [Suspect]
     Active Substance: AMLODIPINE BESYLATE
     Indication: Product used for unknown indication
     Dosage: UNK
     Route: 065
     Dates: end: 20240404

REACTIONS (1)
  - Peripheral swelling [Recovering/Resolving]

NARRATIVE: CASE EVENT DATE: 20240401
